FAERS Safety Report 19147382 (Version 1)
Quarter: 2021Q2

REPORT INFORMATION
  Report Type: Spontaneous
  Country: IT (occurrence: IT)
  Receive Date: 20210416
  Receipt Date: 20210416
  Transmission Date: 20210717
  Serious: Yes (Death, Other)
  Sender: FDA-Public Use
  Company Number: IT-MYLANLABS-2021M1022550

PATIENT
  Age: 51 Year
  Sex: Male

DRUGS (9)
  1. OXALIPLATIN. [Suspect]
     Active Substance: OXALIPLATIN
     Indication: DISEASE PROGRESSION
     Dosage: 25 MG/M2, DAILY( D1?4Q14D)
  2. 5?FLUOROURACIL                     /00098801/ [Suspect]
     Active Substance: FLUOROURACIL
     Indication: DISEASE PROGRESSION
  3. OXALIPLATIN. [Suspect]
     Active Substance: OXALIPLATIN
     Indication: ADENOCARCINOMA OF COLON
  4. FOLINIC ACID [Suspect]
     Active Substance: LEUCOVORIN
     Indication: ADENOCARCINOMA OF COLON
  5. OXALIPLATIN. [Suspect]
     Active Substance: OXALIPLATIN
     Indication: METASTASES TO LIVER
  6. FOLINIC ACID [Suspect]
     Active Substance: LEUCOVORIN
     Indication: METASTASES TO LIVER
  7. 5?FLUOROURACIL                     /00098801/ [Suspect]
     Active Substance: FLUOROURACIL
     Indication: ADENOCARCINOMA OF COLON
  8. 5?FLUOROURACIL                     /00098801/ [Suspect]
     Active Substance: FLUOROURACIL
     Indication: METASTASES TO LIVER
     Dosage: 700 MG/M2, DAILY(D1?4Q14D)
     Dates: start: 201009, end: 201108
  9. FOLINIC ACID [Suspect]
     Active Substance: LEUCOVORIN
     Indication: DISEASE PROGRESSION
     Dosage: 300 MG/M2, DAILY(D1?4Q14D)
     Dates: start: 201009, end: 201108

REACTIONS (5)
  - Neuropathy peripheral [Fatal]
  - Drug resistance [Fatal]
  - Diarrhoea [Fatal]
  - Hand-foot-genital syndrome [Fatal]
  - Nausea [Fatal]
